FAERS Safety Report 10051779 (Version 1)
Quarter: 2014Q2

REPORT INFORMATION
  Report Type: Spontaneous
  Country: US (occurrence: US)
  Receive Date: 20140402
  Receipt Date: 20140402
  Transmission Date: 20141212
  Serious: Yes (Other)
  Sender: FDA-Public Use
  Company Number: US-ROCHE-1370044

PATIENT
  Age: 69 Year
  Sex: Female

DRUGS (2)
  1. BONIVA [Suspect]
     Indication: OSTEOPOROSIS
     Route: 048
  2. MIRALAX [Suspect]
     Indication: ABNORMAL FAECES
     Dosage: MORNING AND NIGHT
     Route: 065

REACTIONS (10)
  - Mitral valve prolapse [Unknown]
  - Impaired healing [Not Recovered/Not Resolved]
  - Poor peripheral circulation [Not Recovered/Not Resolved]
  - Loose tooth [Not Recovered/Not Resolved]
  - Weight decreased [Recovering/Resolving]
  - Gingival recession [Not Recovered/Not Resolved]
  - Gastrointestinal motility disorder [Recovering/Resolving]
  - Malnutrition [Recovering/Resolving]
  - Bone loss [Recovering/Resolving]
  - Tooth extraction [Not Recovered/Not Resolved]
